FAERS Safety Report 5272160-4 (Version None)
Quarter: 2007Q1

REPORT INFORMATION
  Report Type: 
  Country: None (occurrence: None)
  Receive Date: 20070320
  Receipt Date: 20070320
  Transmission Date: 20070707
  Serious: Yes (Hospitalization)
  Sender: FDA-Public Use
  Company Number: None

PATIENT
  Age: 65 Year
  Sex: Male
  Weight: 65 kg

DRUGS (1)
  1. IBRITUMOMAB [Suspect]
     Indication: LYMPHOMA

REACTIONS (2)
  - COUGH [None]
  - HICCUPS [None]
